FAERS Safety Report 13949119 (Version 3)
Quarter: 2017Q4

REPORT INFORMATION
  Report Type: Spontaneous
  Country: JP (occurrence: JP)
  Receive Date: 20170908
  Receipt Date: 20171010
  Transmission Date: 20180320
  Serious: Yes (Hospitalization)
  Sender: FDA-Public Use
  Company Number: JP-TEVA-804292ISR

PATIENT
  Sex: Female

DRUGS (1)
  1. MODIODAL TABLETS 100MG [Suspect]
     Active Substance: MODAFINIL
     Route: 048

REACTIONS (2)
  - Pubis fracture [Recovered/Resolved]
  - Pubis fracture [Unknown]
